FAERS Safety Report 7250901-4 (Version None)
Quarter: 2011Q1

REPORT INFORMATION
  Report Type: 
  Country: None (occurrence: None)
  Receive Date: 20110128
  Receipt Date: 20110125
  Transmission Date: 20110831
  Serious: Yes (Other)
  Sender: FDA-Public Use
  Company Number: A0892859A

PATIENT
  Age: 86 Year
  Sex: Female

DRUGS (8)
  1. LOVAZA [Suspect]
     Dosage: 2CAP TWICE PER DAY
     Route: 048
     Dates: start: 20090101
  2. FEXOFENADINE HCL [Concomitant]
  3. ISOSORBIDE DINITRATE [Concomitant]
  4. KLOR-CON [Concomitant]
  5. PANTOPRAZOLE [Concomitant]
  6. SYNTHROID [Concomitant]
  7. AMLODIPINE [Concomitant]
  8. PLAVIX [Concomitant]

REACTIONS (6)
  - NAIL DISCOLOURATION [None]
  - PRODUCT QUALITY ISSUE [None]
  - FEAR [None]
  - DYSPHAGIA [None]
  - CHOKING [None]
  - FOREIGN BODY [None]
